FAERS Safety Report 8116248-9 (Version None)
Quarter: 2012Q1

REPORT INFORMATION
  Report Type: 
  Country: None (occurrence: None)
  Receive Date: 20120131
  Receipt Date: 20120123
  Transmission Date: 20120608
  Serious: Yes (Death, Hospitalization)
  Sender: FDA-Public Use
  Company Number: 2012SP004163

PATIENT
  Age: 59 Year
  Sex: Female

DRUGS (1)
  1. POSACONAZOLE [Suspect]
     Indication: PROPHYLAXIS

REACTIONS (3)
  - PNEUMONIA FUNGAL [None]
  - PNEUMONIA BACTERIAL [None]
  - CYTOMEGALOVIRUS INFECTION [None]
